FAERS Safety Report 19906562 (Version 1)
Quarter: 2021Q4

REPORT INFORMATION
  Report Type: Spontaneous
  Country: CH (occurrence: CH)
  Receive Date: 20211001
  Receipt Date: 20211001
  Transmission Date: 20220303
  Serious: Yes (Hospitalization, Other)
  Sender: FDA-Public Use
  Company Number: None

PATIENT
  Sex: Female

DRUGS (15)
  1. REMERON [Suspect]
     Active Substance: MIRTAZAPINE
     Dosage: REMERON? TABLET 30MG (MIRTAZAPINE) 0-0-1-0
     Route: 048
  2. CIPRALEX [Suspect]
     Active Substance: ESCITALOPRAM OXALATE
     Dosage: 10 MILLIGRAM, QD
     Route: 048
     Dates: end: 202012
  3. CYMBALTA [Suspect]
     Active Substance: DULOXETINE HYDROCHLORIDE
     Dosage: CYMBALTA? TABLET 30MG (DULOXETIN)~~~0-0-1-0
     Route: 048
  4. DIAZEPAM [Concomitant]
     Active Substance: DIAZEPAM
     Dosage: PSYCHOPAX? DROPS 1MG/3 DROPS (DIAZEPAM) 2-2-0-0
     Route: 048
  5. DYDROGESTERONE\ESTRADIOL [Concomitant]
     Active Substance: DYDROGESTERONE\ESTRADIOL
     Dosage: FEMOSTON? TABLET 2/10 MG (ESTRADIOL, DYDROGESTERON)  1-0-0-0
     Route: 048
  6. METOCLOPRAMIDE HYDROCHLORIDE [Concomitant]
     Active Substance: METOCLOPRAMIDE HYDROCHLORIDE
     Dosage: PASPERTIN? FILM COATED TABLETS10 MG (METOCLOPRAMIDE) P.O.1-1-1-0
     Route: 048
  7. NEXIUM [Concomitant]
     Active Substance: ESOMEPRAZOLE MAGNESIUM
     Dosage: NEXIUM? MUPS TABL ETS 40 MG (ESOMEPRAZOLE) P.O.1-0-0-0
     Route: 048
  8. THIAMINE HYDROCHLORIDE [Concomitant]
     Active Substance: THIAMINE HYDROCHLORIDE
     Dosage: BENERVA? TABLET 300 MG (THIAMINE (VITAMIN B1)) P.O. 1-0-0-0
     Route: 048
  9. CHOLECALCIFEROL [Concomitant]
     Active Substance: CHOLECALCIFEROL
     Dosage: VITAMIN D3? SANDOZ TABL ET 1000 IU (COLECALCIFEROL) P.O. ~1-0-0-0
     Route: 048
  10. CALCIUM\CHOLECALCIFEROL [Concomitant]
     Active Substance: CALCIUM\CHOLECALCIFEROL
     Dosage: CALCIMAGON D3? CHEWABLE TABLET 500 MG/800 U (CALCIUM, COLECALCIFEROL (VITAMIN D3)) P.O. 1-0-0-0
     Route: 048
  11. GYNO-TARDYFERON [Concomitant]
     Dosage: GYNO-TARDYFERON? COATED PROLONGED RELEASE TABLET (IRON (II), FOLIC ACID) P.O 0-1-0-0
     Route: 048
  12. MAGNESIUM DIASPORAL [MAGNESIUM CITRATE] [Concomitant]
     Dosage: MAGNESIUM DIASPORAL? GRANULES 300 MG (12.4 MMOL) P.O. 2-1-2-0
     Route: 048
  13. MINERALS\VITAMINS [Concomitant]
     Active Substance: MINERALS\VITAMINS
     Dosage: SUPRADYN ENERGY? FILM COATED TABLETS (MULTIVITAMINS) P.O. 1-0-0-0
     Route: 048
  14. DUPHALAC [Concomitant]
     Active Substance: LACTULOSE
     Dosage: DUPHALAC? SYRUP (LACTULOSE) P.O. 20ML-0-20ML
     Route: 048
  15. SODIUM CHLORIDE [Concomitant]
     Active Substance: SODIUM CHLORIDE
     Dosage: NACL WELTI? TABLET 1 G (SODIUM CHLORIDE) P.O. 1-0-1-0
     Route: 048

REACTIONS (2)
  - Hyponatraemia [Unknown]
  - Hypoosmolar state [Unknown]
